FAERS Safety Report 22612167 (Version 1)
Quarter: 2023Q2

REPORT INFORMATION
  Report Type: Report from Study
  Country: MX (occurrence: MX)
  Receive Date: 20230617
  Receipt Date: 20230617
  Transmission Date: 20230722
  Serious: Yes (Other)
  Sender: FDA-Public Use
  Company Number: MX-002147023-NVSC2023MX118574

PATIENT
  Age: 66 Year
  Sex: Female
  Weight: 77 kg

DRUGS (3)
  1. ENTRESTO [Suspect]
     Active Substance: SACUBITRIL\VALSARTAN
     Indication: Aortic valve incompetence
     Dosage: 0.5 DOSAGE FORM, BID (EVERY 12 HOURS))
     Route: 048
     Dates: start: 20230318
  2. BISOPROLOL FUMARATE [Concomitant]
     Active Substance: BISOPROLOL FUMARATE
     Indication: Product used for unknown indication
     Dosage: 0.5 DOSAGE FORM (1.25 MG)
     Route: 048
     Dates: start: 2019
  3. BISOPROLOL FUMARATE [Concomitant]
     Active Substance: BISOPROLOL FUMARATE
     Dosage: 1 DOSAGE FORM (1.25 MG EVERY 24  HOURS))
     Route: 048
     Dates: start: 2021

REACTIONS (5)
  - Glaucoma [Unknown]
  - Visual impairment [Not Recovered/Not Resolved]
  - Wrong technique in product usage process [Not Recovered/Not Resolved]
  - Prescribed underdose [Not Recovered/Not Resolved]
  - Product use in unapproved indication [Not Recovered/Not Resolved]

NARRATIVE: CASE EVENT DATE: 20230318
